FAERS Safety Report 10258409 (Version 1)
Quarter: 2014Q2

REPORT INFORMATION
  Report Type: Spontaneous
  Country: PL (occurrence: PL)
  Receive Date: 20140625
  Receipt Date: 20140625
  Transmission Date: 20141212
  Serious: Yes (Death, Other)
  Sender: FDA-Public Use
  Company Number: PL-BAXTER-2014BAX032962

PATIENT
  Age: 53 Year
  Sex: Male

DRUGS (6)
  1. ENDOXAN [Suspect]
     Indication: GOODPASTURE^S SYNDROME
     Route: 065
  2. KIOVIG 100 MG/ML SOLUTION FOR INFUSION [Suspect]
     Indication: GOODPASTURE^S SYNDROME
     Route: 041
  3. METHYLPREDNISOLONE [Suspect]
     Indication: GOODPASTURE^S SYNDROME
     Dosage: A TOTAL OF 14 DOSES
     Route: 065
  4. OSELTAMIVIR [Concomitant]
     Indication: PRODUCT USED FOR UNKNOWN INDICATION
     Route: 065
  5. PREDNISOLONE [Concomitant]
     Indication: GOODPASTURE^S SYNDROME
     Route: 065
  6. PREDNISOLONE [Concomitant]
     Route: 065

REACTIONS (8)
  - Anuria [Unknown]
  - Fluid imbalance [Unknown]
  - Electrolyte imbalance [Unknown]
  - Acid base balance abnormal [Unknown]
  - Disseminated intravascular coagulation [Fatal]
  - Sepsis [Unknown]
  - Septic shock [Fatal]
  - Multi-organ failure [Fatal]
